FAERS Safety Report 18375509 (Version 1)
Quarter: 2020Q4

REPORT INFORMATION
  Report Type: Spontaneous
  Country: US (occurrence: US)
  Receive Date: 20201012
  Receipt Date: 20201012
  Transmission Date: 20210114
  Serious: Yes (Death)
  Sender: FDA-Public Use
  Company Number: None

PATIENT
  Age: 87 Year
  Sex: Male
  Weight: 112.94 kg

DRUGS (1)
  1. REMDESIVIR. [Suspect]
     Active Substance: REMDESIVIR

REACTIONS (11)
  - Cardiac failure congestive [None]
  - Aortic valve incompetence [None]
  - Left ventricular hypertrophy [None]
  - Mitral valve incompetence [None]
  - Respiratory failure [None]
  - Tricuspid valve incompetence [None]
  - Pulmonary oedema [None]
  - Hypotension [None]
  - Acute myocardial infarction [None]
  - COVID-19 pneumonia [None]
  - Bradycardia [None]

NARRATIVE: CASE EVENT DATE: 20201004
